FAERS Safety Report 22011315 (Version 3)
Quarter: 2023Q1

REPORT INFORMATION
  Report Type: Report from Study
  Country: CA (occurrence: CA)
  Receive Date: 20230220
  Receipt Date: 20230301
  Transmission Date: 20230418
  Serious: Yes (Life-Threatening, Hospitalization, Other)
  Sender: FDA-Public Use
  Company Number: CA-JNJFOC-20230234470

PATIENT
  Age: 55 Year
  Sex: Female

DRUGS (3)
  1. REMICADE [Suspect]
     Active Substance: INFLIXIMAB
     Indication: Crohn^s disease
     Dosage: BEEN TAKING REMICADE FOR 15 YEARS
     Route: 041
     Dates: start: 2004
  2. IMURAN [Suspect]
     Active Substance: AZATHIOPRINE
     Indication: Product used for unknown indication
     Dosage: FOR 25 YEARS
  3. XAMIOL [BETAMETHASONE DIPROPIONATE;CALCIPOTRIOL MONOHYDRATE] [Concomitant]
     Indication: Psoriasis

REACTIONS (13)
  - Latent tuberculosis [Recovered/Resolved]
  - Squamous cell carcinoma of skin [Recovering/Resolving]
  - Pneumonia [Recovered/Resolved]
  - Haemorrhage [Unknown]
  - Osteoarthritis [Unknown]
  - Abdominal distension [Unknown]
  - Thirst [Not Recovered/Not Resolved]
  - Injection site pain [Unknown]
  - Herpes zoster [Recovered/Resolved]
  - Psoriasis [Recovered/Resolved]
  - Sinusitis [Unknown]
  - Dizziness [Not Recovered/Not Resolved]
  - Off label use [Unknown]

NARRATIVE: CASE EVENT DATE: 20080101
